FAERS Safety Report 7213194-X (Version None)
Quarter: 2010Q4

REPORT INFORMATION
  Report Type: 
  Country: None (occurrence: None)
  Receive Date: 20101227
  Receipt Date: 20101215
  Transmission Date: 20110411
  Serious: Yes (Other)
  Sender: FDA-Public Use
  Company Number: 023418

PATIENT
  Sex: Female

DRUGS (7)
  1. KEPPRA [Suspect]
     Indication: GRAND MAL CONVULSION
     Dosage: (500 MG BID, 500MG (1 IN THE AM AND 1 IN THE PM)), (1000 MG BID, 500MG (2 IN THE AM AND 2 IN THE PM)
     Dates: start: 20100901, end: 20101001
  2. KEPPRA [Suspect]
     Indication: GRAND MAL CONVULSION
     Dosage: (500 MG BID, 500MG (1 IN THE AM AND 1 IN THE PM)), (1000 MG BID, 500MG (2 IN THE AM AND 2 IN THE PM)
     Dates: start: 20101001
  3. KEPPRA [Suspect]
     Indication: GRAND MAL CONVULSION
     Dosage: (1000 MG BID, 500MG (2 IN THE AM AND 2 IN THE PM))
     Dates: start: 20080101
  4. PREVENTIL [Concomitant]
  5. PLAVIX [Concomitant]
  6. CRESTOR [Concomitant]
  7. VITAMINS NOS [Concomitant]

REACTIONS (2)
  - CONDITION AGGRAVATED [None]
  - GRAND MAL CONVULSION [None]
